FAERS Safety Report 4764653-0 (Version None)
Quarter: 2005Q3

REPORT INFORMATION
  Report Type: 
  Country: None (occurrence: None)
  Receive Date: 20050909
  Receipt Date: 20050829
  Transmission Date: 20060218
  Serious: Yes (Other)
  Sender: FDA-Public Use
  Company Number: JP-JPN-A20052045

PATIENT
  Age: 2 Year
  Sex: Female
  Weight: 8.8 kg

DRUGS (10)
  1. ALKERAN [Suspect]
     Indication: STEM CELL TRANSPLANT
     Dosage: 90MGM2 PER DAY
     Route: 042
     Dates: start: 20040926, end: 20040927
  2. PARAPLATIN [Suspect]
     Indication: STEM CELL TRANSPLANT
     Dosage: 400MGM2 PER DAY
     Route: 042
     Dates: start: 20040922, end: 20040925
  3. VEPESID [Suspect]
     Indication: STEM CELL TRANSPLANT
     Dosage: 200MGM2 PER DAY
     Route: 042
     Dates: start: 20040922, end: 20040925
  4. NEUTROGIN [Concomitant]
     Route: 042
     Dates: start: 20041001, end: 20041012
  5. OMEPRAZOLE [Concomitant]
     Route: 042
     Dates: start: 20041001, end: 20041013
  6. MEROPEN [Concomitant]
     Route: 042
     Dates: start: 20041004, end: 20041013
  7. PROSTANDIN [Concomitant]
     Route: 042
     Dates: start: 20041004, end: 20041031
  8. FOSFLUCONAZOLE [Concomitant]
     Route: 042
     Dates: start: 20041005, end: 20041006
  9. TARGOCID [Concomitant]
     Route: 042
     Dates: start: 20041005, end: 20041013
  10. FUNGUARD [Concomitant]
     Route: 042
     Dates: start: 20041006, end: 20041202

REACTIONS (1)
  - RENAL DISORDER [None]
